FAERS Safety Report 8463051-6 (Version None)
Quarter: 2012Q2

REPORT INFORMATION
  Report Type: 
  Country: None (occurrence: None)
  Receive Date: 20120625
  Receipt Date: 20100607
  Transmission Date: 20120825
  Serious: Yes (Other)
  Sender: FDA-Public Use
  Company Number: US-ROCHE-709152

PATIENT
  Sex: Female

DRUGS (2)
  1. HERCEPTIN [Suspect]
     Indication: UNEVALUABLE EVENT
     Route: 042
     Dates: start: 20090301, end: 20100201
  2. XELODA [Suspect]
     Indication: UNEVALUABLE EVENT
     Dosage: FREQUENCY:  2WEEKS ON, 1 WEEK OFF.
     Route: 048
     Dates: start: 20100201, end: 20100601

REACTIONS (2)
  - DRUG INEFFECTIVE [None]
  - RECURRENT CANCER [None]
